FAERS Safety Report 8010455-1 (Version None)
Quarter: 2011Q4

REPORT INFORMATION
  Report Type: 
  Country: None (occurrence: None)
  Receive Date: 20111223
  Receipt Date: 20111223
  Transmission Date: 20120403
  Serious: Yes (Hospitalization)
  Sender: FDA-Public Use
  Company Number: None

PATIENT
  Age: 66 Year
  Sex: Male
  Weight: 107.9 kg

DRUGS (5)
  1. EVEROLIMUS (RAD001) [Suspect]
     Indication: MANTLE CELL LYMPHOMA
     Dosage: 5MG 1 PILL DAILY
     Dates: start: 20111011
  2. VELCADE [Suspect]
     Indication: MANTLE CELL LYMPHOMA
     Dosage: 2.96 MG IV ON D1, 4, 8, 11
     Dates: start: 20111125
  3. VELCADE [Suspect]
     Indication: MANTLE CELL LYMPHOMA
     Dosage: 2.96 MG IV ON D1, 4, 8, 11
     Dates: start: 20111129
  4. VELCADE [Suspect]
     Indication: MANTLE CELL LYMPHOMA
     Dosage: 2.96 MG IV ON D1, 4, 8, 11
     Dates: start: 20111202
  5. VELCADE [Suspect]
     Indication: MANTLE CELL LYMPHOMA
     Dosage: 2.96 MG IV ON D1, 4, 8, 11
     Dates: start: 20111122

REACTIONS (3)
  - PLEURAL EFFUSION [None]
  - HYPOXIA [None]
  - DYSPNOEA [None]
